FAERS Safety Report 18059145 (Version 1)
Quarter: 2020Q3

REPORT INFORMATION
  Report Type: Spontaneous
  Country: US (occurrence: US)
  Receive Date: 20200723
  Receipt Date: 20200723
  Transmission Date: 20201103
  Serious: Yes (Other)
  Sender: FDA-Public Use
  Company Number: None

PATIENT
  Age: 63 Year
  Sex: Male
  Weight: 101.7 kg

DRUGS (10)
  1. TAMSULOSIN 0.4 MG DAILY [Concomitant]
  2. ATORVASTATIN 80 MG DAILY [Concomitant]
     Dates: end: 20200721
  3. REMDESIVIR. [Suspect]
     Active Substance: REMDESIVIR
     Indication: COVID-19
     Route: 042
  4. METOPROLOL SUCCINATE 25 MG DAILY [Concomitant]
  5. LISINOPRIL 5 MG DAILY [Concomitant]
  6. ENOXAPARIN 30 MG Q12H [Concomitant]
     Dates: start: 20200720
  7. ASPIRIN 325 MG DAILY [Concomitant]
  8. ALLOPURINOL 300 MG DAILY [Concomitant]
  9. INSULIN GLARGINE + LISPRO [Concomitant]
  10. ACETAMINOPHEN 650 MG Q4H PRN (1 DOSE GIVEN) [Concomitant]
     Dates: start: 20200720, end: 20200720

REACTIONS (3)
  - Alanine aminotransferase decreased [None]
  - Hepatotoxicity [None]
  - Aspartate aminotransferase decreased [None]

NARRATIVE: CASE EVENT DATE: 20200722
